FAERS Safety Report 4678625-8 (Version None)
Quarter: 2005Q2

REPORT INFORMATION
  Report Type: 
  Country: None (occurrence: None)
  Receive Date: 20050527
  Receipt Date: 20050512
  Transmission Date: 20051028
  Serious: Yes (Hospitalization)
  Sender: FDA-Public Use
  Company Number: 2005074303

PATIENT
  Age: 78 Year
  Sex: Male
  Weight: 76 kg

DRUGS (7)
  1. FELDENE [Suspect]
     Indication: ILL-DEFINED DISORDER
     Dosage: ORAL
     Route: 047
     Dates: start: 20040109, end: 20040117
  2. ALLOPURINOL [Suspect]
     Indication: ILL-DEFINED DISORDER
     Dosage: ORAL
     Route: 048
     Dates: end: 20040117
  3. BACLOFEN [Concomitant]
  4. FUROSEMIDE [Concomitant]
  5. FINASTERIDE [Concomitant]
  6. FERROUS SULFATE TAB [Concomitant]
  7. ZESTRIL [Suspect]
     Indication: ILL-DEFINED DISORDER
     Dosage: ORAL
     Route: 048
     Dates: end: 20040117

REACTIONS (9)
  - ANAEMIA [None]
  - DEPRESSED LEVEL OF CONSCIOUSNESS [None]
  - GASTRIC ULCER [None]
  - GENERAL PHYSICAL CONDITION ABNORMAL [None]
  - HAEMATEMESIS [None]
  - HERNIA [None]
  - HYPERKALAEMIA [None]
  - OESOPHAGITIS [None]
  - RENAL FAILURE [None]
